FAERS Safety Report 8829376 (Version 3)
Quarter: 2012Q4

REPORT INFORMATION
  Report Type: 
  Country: US (occurrence: US)
  Receive Date: 20121008
  Receipt Date: 20121203
  Transmission Date: 20130627
  Serious: Yes (Other)
  Sender: FDA-Public Use
  Company Number: US-ROCHE-1072430

PATIENT
  Age: 14 Year
  Sex: Male
  Weight: 56.75 kg

DRUGS (3)
  1. ACCUTANE [Suspect]
     Indication: PRODUCT USED FOR UNKNOWN INDICATION
     Route: 048
     Dates: start: 200011, end: 200104
  2. ACCUTANE [Suspect]
     Route: 048
     Dates: start: 200303, end: 200304
  3. ACCUTANE [Suspect]
     Route: 048
     Dates: start: 20061110, end: 20070520

REACTIONS (12)
  - Inflammatory bowel disease [Unknown]
  - Colitis ulcerative [Unknown]
  - Crohn^s disease [Unknown]
  - Hypoglycaemia [Unknown]
  - Headache [Unknown]
  - Xerosis [Unknown]
  - Cyst [Unknown]
  - Lip swelling [Unknown]
  - Tinea versicolour [Unknown]
  - Cheilitis [Unknown]
  - Blood triglycerides increased [Unknown]
  - Blood cholesterol increased [Unknown]
